FAERS Safety Report 6768138-1 (Version None)
Quarter: 2010Q2

REPORT INFORMATION
  Report Type: 
  Country: None (occurrence: None)
  Receive Date: 20100610
  Receipt Date: 20100526
  Transmission Date: 20101027
  Serious: Yes (Other)
  Sender: FDA-Public Use
  Company Number: 2010002121

PATIENT
  Age: 60 Year
  Sex: Female

DRUGS (4)
  1. TARCEVA [Suspect]
     Indication: LUNG NEOPLASM MALIGNANT
     Dosage: 150 MG, ORAL
     Route: 048
  2. PYRIDOXINE (PYRIDOXINE) [Concomitant]
  3. DIPHENOXYLATE (DIPHENOXYLATE) [Concomitant]
  4. MULTIVITAMIN NOS [Concomitant]

REACTIONS (4)
  - DIARRHOEA [None]
  - DRY SKIN [None]
  - OEDEMA PERIPHERAL [None]
  - PARONYCHIA [None]
